FAERS Safety Report 8121113-7 (Version None)
Quarter: 2012Q1

REPORT INFORMATION
  Report Type: 
  Country: None (occurrence: None)
  Receive Date: 20120208
  Receipt Date: 20120131
  Transmission Date: 20120608
  Serious: Yes (Hospitalization)
  Sender: FDA-Public Use
  Company Number: US-BRISTOL-MYERS SQUIBB COMPANY-16376865

PATIENT
  Age: 72 Year
  Sex: Male
  Weight: 95 kg

DRUGS (1)
  1. ERBITUX [Suspect]
     Indication: COLON CANCER
     Dosage: STARTED ERBITUX AT LEAST 2 MONTHS AGO

REACTIONS (1)
  - LOSS OF CONSCIOUSNESS [None]
